FAERS Safety Report 12627266 (Version 1)
Quarter: 2016Q3

REPORT INFORMATION
  Report Type: Spontaneous
  Country: FR (occurrence: FR)
  Receive Date: 20160805
  Receipt Date: 20160805
  Transmission Date: 20161109
  Serious: Yes (Hospitalization)
  Sender: FDA-Public Use
  Company Number: FR-SA-2016SA143484

PATIENT
  Age: 71 Year
  Sex: Male

DRUGS (6)
  1. CO-APROVEL [Suspect]
     Active Substance: HYDROCHLOROTHIAZIDE\IRBESARTAN
     Indication: HYPERTENSION
     Route: 048
     Dates: start: 20160515, end: 20160523
  2. NICARDIPINE [Concomitant]
     Active Substance: NICARDIPINE
     Dates: start: 20160515, end: 20160517
  3. TAREG [Suspect]
     Active Substance: VALSARTAN
     Indication: HYPERTENSION
     Route: 048
     Dates: start: 20160515, end: 20160523
  4. FLUINDIONE [Concomitant]
     Active Substance: FLUINDIONE
  5. NADOLOL. [Concomitant]
     Active Substance: NADOLOL
  6. NEXAVAR [Suspect]
     Active Substance: SORAFENIB
     Indication: HEPATOCELLULAR CARCINOMA
     Dosage: STRENGTH: 200 MG
     Route: 048
     Dates: start: 20160427, end: 20160528

REACTIONS (4)
  - Hepatic cirrhosis [Recovering/Resolving]
  - Acute kidney injury [Recovered/Resolved]
  - Diarrhoea [Recovered/Resolved]
  - Hepatic encephalopathy [Recovering/Resolving]

NARRATIVE: CASE EVENT DATE: 201605
